FAERS Safety Report 20446382 (Version 2)
Quarter: 2023Q4

REPORT INFORMATION
  Report Type: Spontaneous
  Country: GB (occurrence: GB)
  Receive Date: 20220208
  Receipt Date: 20231002
  Transmission Date: 20240109
  Serious: Yes (Other)
  Sender: FDA-Public Use
  Company Number: None

PATIENT
  Age: 55 Year
  Sex: Female

DRUGS (5)
  1. METHOTREXATE SODIUM [Suspect]
     Active Substance: METHOTREXATE SODIUM
     Indication: Psoriatic arthropathy
     Dosage: 10 MG, WEEKLY
     Route: 051
  2. ATORVASTATIN [Concomitant]
     Active Substance: ATORVASTATIN
  3. ESTRADIOL [Concomitant]
     Active Substance: ESTRADIOL
  4. FOLIC ACID [Concomitant]
     Active Substance: FOLIC ACID
  5. UTROGESTAN [Concomitant]
     Active Substance: PROGESTERONE

REACTIONS (1)
  - Depression [Recovering/Resolving]

NARRATIVE: CASE EVENT DATE: 20220128
